FAERS Safety Report 20830175 (Version 2)
Quarter: 2022Q2

REPORT INFORMATION
  Report Type: Spontaneous
  Country: US (occurrence: US)
  Receive Date: 20220514
  Receipt Date: 20220607
  Transmission Date: 20220721
  Serious: No
  Sender: FDA-Public Use
  Company Number: US-HETERO-HET2022US01018

PATIENT
  Age: 89 Year
  Sex: Male
  Weight: 77 kg

DRUGS (2)
  1. IRBESARTAN [Suspect]
     Active Substance: IRBESARTAN
     Indication: Blood pressure measurement
     Dosage: 150 MG, QD
     Route: 048
     Dates: start: 20220506, end: 202205
  2. IRBESARTAN [Suspect]
     Active Substance: IRBESARTAN
     Dosage: BREAKING THE TABLET INTO HALF AND TAKING BEFOR GOING TO BED
     Route: 065

REACTIONS (3)
  - Blood pressure increased [Recovering/Resolving]
  - Product dispensing error [Unknown]
  - Wrong technique in product usage process [Unknown]

NARRATIVE: CASE EVENT DATE: 20220506
